FAERS Safety Report 5639883-6 (Version None)
Quarter: 2008Q1

REPORT INFORMATION
  Report Type: 
  Country: None (occurrence: None)
  Receive Date: 20080226
  Receipt Date: 20080226
  Transmission Date: 20080703
  Serious: No
  Sender: FDA-Public Use
  Company Number: None

PATIENT
  Age: 28 Year
  Sex: Female
  Weight: 107.9561 kg

DRUGS (1)
  1. LEVAQUIN [Suspect]
     Dosage: 500 MG  1 PER DAY PO
     Route: 048
     Dates: start: 20080220, end: 20080223

REACTIONS (7)
  - BURNING SENSATION [None]
  - CHAPPED LIPS [None]
  - HEART RATE INCREASED [None]
  - PAIN [None]
  - PARAESTHESIA [None]
  - RASH [None]
  - SENSORY DISTURBANCE [None]
